FAERS Safety Report 4909918-4 (Version None)
Quarter: 2006Q1

REPORT INFORMATION
  Report Type: 
  Country: None (occurrence: None)
  Receive Date: 20060213
  Receipt Date: 20060201
  Transmission Date: 20060701
  Serious: Yes (Other)
  Sender: FDA-Public Use
  Company Number: 2006AP00591

PATIENT
  Age: 15836 Day
  Sex: Male

DRUGS (1)
  1. XYLOCAINE [Suspect]
     Indication: ANAESTHESIA
     Dosage: 1 - 2 CC
     Route: 047
     Dates: start: 20040318, end: 20040318

REACTIONS (2)
  - EYE INJURY [None]
  - PROCEDURAL COMPLICATION [None]
